FAERS Safety Report 21679041 (Version 2)
Quarter: 2022Q4

REPORT INFORMATION
  Report Type: Spontaneous
  Country: US (occurrence: US)
  Receive Date: 20221204
  Receipt Date: 20221213
  Transmission Date: 20230113
  Serious: Yes (Death, Other)
  Sender: FDA-Public Use
  Company Number: US-BRISTOL-MYERS SQUIBB COMPANY-2022-145826

PATIENT
  Age: 89 Year
  Sex: Male

DRUGS (2)
  1. REVLIMID [Suspect]
     Active Substance: LENALIDOMIDE
     Indication: Plasma cell myeloma
     Dosage: 1 CAPSULE EVERY OTHER DAY,
     Route: 048
     Dates: start: 20220811
  2. REVLIMID [Suspect]
     Active Substance: LENALIDOMIDE
     Dosage: 7

REACTIONS (2)
  - Death [Fatal]
  - Off label use [Unknown]
